FAERS Safety Report 6021825-5 (Version None)
Quarter: 2008Q4

REPORT INFORMATION
  Report Type: 
  Country: None (occurrence: None)
  Receive Date: 20081222
  Receipt Date: 20081015
  Transmission Date: 20090506
  Serious: No
  Sender: FDA-Public Use
  Company Number: ALL1-2008-03015

PATIENT
  Age: 51 Year
  Sex: Male
  Weight: 99.8 kg

DRUGS (8)
  1. VYVANSE [Suspect]
     Indication: ATTENTION DEFICIT/HYPERACTIVITY DISORDER
     Dosage: 50 MG, 1X/DAY; QD ORAL; 30 MG, 1X/DAY; QD ORAL; 50 MG, 1X/DAY:QD, ORAL
     Route: 048
     Dates: start: 20080101, end: 20080901
  2. VYVANSE [Suspect]
     Indication: ATTENTION DEFICIT/HYPERACTIVITY DISORDER
     Dosage: 50 MG, 1X/DAY; QD ORAL; 30 MG, 1X/DAY; QD ORAL; 50 MG, 1X/DAY:QD, ORAL
     Route: 048
     Dates: start: 20081006, end: 20081011
  3. VYVANSE [Suspect]
     Indication: ATTENTION DEFICIT/HYPERACTIVITY DISORDER
     Dosage: 50 MG, 1X/DAY; QD ORAL; 30 MG, 1X/DAY; QD ORAL; 50 MG, 1X/DAY:QD, ORAL
     Route: 048
     Dates: start: 20081011
  4. AMBIEN CR [Concomitant]
  5. DEPAKOTE ER [Concomitant]
  6. SEROQUEL [Concomitant]
  7. WELLBUTRIN [Concomitant]
  8. SIMVASTATIN [Concomitant]

REACTIONS (2)
  - ANXIETY [None]
  - DRUG INEFFECTIVE [None]
